FAERS Safety Report 6552175-6 (Version None)
Quarter: 2010Q1

REPORT INFORMATION
  Report Type: 
  Country: None (occurrence: None)
  Receive Date: 20100126
  Receipt Date: 20100119
  Transmission Date: 20100710
  Serious: Yes (Hospitalization)
  Sender: FDA-Public Use
  Company Number: FR-PFIZER INC-2010003554

PATIENT
  Age: 59 Year
  Sex: Female

DRUGS (2)
  1. TAHOR [Suspect]
     Dosage: 1 DF, 1X/DAY
     Route: 048
     Dates: start: 20080101, end: 20091211
  2. AUGMENTIN [Suspect]
     Dosage: 1 DF, 2X/DAY
     Route: 048
     Dates: start: 20091128, end: 20091206

REACTIONS (2)
  - PRURITUS [None]
  - URTICARIA [None]
